FAERS Safety Report 10425819 (Version 23)
Quarter: 2021Q4

REPORT INFORMATION
  Report Type: Other
  Country: CA (occurrence: None)
  Receive Date: 20140903
  Receipt Date: 20211207
  Transmission Date: 20220303
  Serious: Yes (Death, Other)
  Sender: FDA-Public Use
  Company Number: CA-ROCHE-1193229

PATIENT
  Sex: Female
  Weight: 46 kg

DRUGS (19)
  1. RITUXAN [Suspect]
     Active Substance: RITUXIMAB
     Indication: Rheumatoid arthritis
     Dosage: LAST DOSE OF RITUXIMAB WAS ON 19/MAR/2013,
     Route: 042
     Dates: start: 20070502, end: 20131206
  2. ACTEMRA [Suspect]
     Active Substance: TOCILIZUMAB
     Indication: Rheumatoid arthritis
     Route: 042
     Dates: start: 20140124, end: 20140331
  3. ACTEMRA [Suspect]
     Active Substance: TOCILIZUMAB
     Route: 042
     Dates: start: 20140502, end: 20150528
  4. ACTEMRA [Suspect]
     Active Substance: TOCILIZUMAB
     Route: 042
     Dates: start: 20150625, end: 20150625
  5. ACTEMRA [Suspect]
     Active Substance: TOCILIZUMAB
     Route: 042
     Dates: start: 20150723, end: 20160901
  6. ACTEMRA [Suspect]
     Active Substance: TOCILIZUMAB
     Route: 042
     Dates: start: 20160929, end: 20170602
  7. ACTEMRA [Suspect]
     Active Substance: TOCILIZUMAB
     Route: 042
     Dates: start: 20170713, end: 20180720
  8. ACTEMRA [Suspect]
     Active Substance: TOCILIZUMAB
     Route: 042
     Dates: start: 20180817, end: 20211119
  9. METHOTREXATE [Concomitant]
     Active Substance: METHOTREXATE
     Route: 065
  10. RABEPRAZOLE [Concomitant]
     Active Substance: RABEPRAZOLE
     Route: 065
  11. CETIRIZINE HYDROCHLORIDE [Concomitant]
     Active Substance: CETIRIZINE HYDROCHLORIDE
     Route: 065
  12. FOSAMAX [Concomitant]
     Active Substance: ALENDRONATE SODIUM
  13. DIPHENHYDRAMINE HYDROCHLORIDE [Concomitant]
     Active Substance: DIPHENHYDRAMINE HYDROCHLORIDE
     Indication: Premedication
     Route: 048
     Dates: start: 20090731, end: 20131206
  14. ACETAMINOPHEN [Concomitant]
     Active Substance: ACETAMINOPHEN
     Indication: Premedication
     Route: 048
     Dates: start: 20090731, end: 20131206
  15. ERYTHROMYCIN [Concomitant]
     Active Substance: ERYTHROMYCIN
     Route: 065
  16. FOLIC ACID [Concomitant]
     Active Substance: FOLIC ACID
     Route: 065
  17. TYLENOL ARTHRITIS PAIN [Concomitant]
     Active Substance: ACETAMINOPHEN
     Route: 065
  18. METHYLPREDNISOLONE [Concomitant]
     Active Substance: METHYLPREDNISOLONE
     Indication: Premedication
     Route: 042
     Dates: start: 20090731, end: 20131206
  19. IRON [Concomitant]
     Active Substance: IRON

REACTIONS (32)
  - Systemic lupus erythematosus [Unknown]
  - Pneumonia [Unknown]
  - Dyspnoea [Recovering/Resolving]
  - Bell^s palsy [Unknown]
  - Dry eye [Not Recovered/Not Resolved]
  - Eye inflammation [Unknown]
  - Food poisoning [Recovering/Resolving]
  - Therapeutic response decreased [Unknown]
  - Skin lesion [Not Recovered/Not Resolved]
  - Bronchitis [Not Recovered/Not Resolved]
  - Rheumatoid arthritis [Not Recovered/Not Resolved]
  - Herpes virus infection [Unknown]
  - Weight decreased [Unknown]
  - Body temperature increased [Unknown]
  - Heart rate increased [Unknown]
  - Respiratory rate increased [Unknown]
  - Pruritus [Recovered/Resolved]
  - Rash [Recovered/Resolved]
  - Weight increased [Not Recovered/Not Resolved]
  - Nasopharyngitis [Not Recovered/Not Resolved]
  - Infection [Not Recovered/Not Resolved]
  - Wound dehiscence [Unknown]
  - Productive cough [Not Recovered/Not Resolved]
  - Pyrexia [Not Recovered/Not Resolved]
  - Oropharyngeal pain [Not Recovered/Not Resolved]
  - Malaise [Unknown]
  - Upper-airway cough syndrome [Not Recovered/Not Resolved]
  - Nausea [Unknown]
  - Vomiting [Unknown]
  - Decreased appetite [Not Recovered/Not Resolved]
  - Respiratory failure [Fatal]
  - Cardiac failure [Fatal]

NARRATIVE: CASE EVENT DATE: 20130101
